FAERS Safety Report 14939164 (Version 1)
Quarter: 2018Q2

REPORT INFORMATION
  Report Type: Spontaneous
  Country: US (occurrence: US)
  Receive Date: 20180522
  Receipt Date: 20180522
  Transmission Date: 20180711
  Serious: Yes (Death, Hospitalization)
  Sender: FDA-Public Use
  Company Number: US-SAOL THERAPEUTICS-2018SAO00765

PATIENT
  Age: 67 Year
  Sex: Female

DRUGS (10)
  1. BACLOFEN. [Suspect]
     Active Substance: BACLOFEN
     Dosage: 92.93 ?G, \DAY
     Route: 037
  2. CLONIDINE. [Suspect]
     Active Substance: CLONIDINE
     Dosage: 325.27 ?G, \DAY
     Route: 037
  3. MORPHINE [Suspect]
     Active Substance: MORPHINE
     Dosage: 18.587 MG, \DAY
     Route: 037
  4. BUPIVACAINE. [Suspect]
     Active Substance: BUPIVACAINE
     Dosage: 14.684 MG, \DAY
     Route: 037
  5. FENTANYL. [Suspect]
     Active Substance: FENTANYL
     Dosage: 92.93 ?G, \DAY
     Route: 037
  6. MORPHINE [Suspect]
     Active Substance: MORPHINE
     Dosage: 30.053 MG, \DAY - MAX
  7. BUPIVACAINE. [Suspect]
     Active Substance: BUPIVACAINE
     Dosage: 23.742 MG, \DAY - MAX
  8. FENTANYL. [Suspect]
     Active Substance: FENTANYL
     Dosage: 150.27 ?G, \DAY- MAX
  9. BACLOFEN. [Suspect]
     Active Substance: BACLOFEN
     Dosage: 150.27 ?G, \DAY - MAX
  10. CLONIDINE. [Suspect]
     Active Substance: CLONIDINE
     Dosage: 525.93 ?G, \DAY - MAX

REACTIONS (3)
  - Device battery issue [Unknown]
  - Device issue [Unknown]
  - Myocardial infarction [Fatal]

NARRATIVE: CASE EVENT DATE: 20151026
